FAERS Safety Report 6483633-0 (Version None)
Quarter: 2009Q4

REPORT INFORMATION
  Report Type: 
  Country: None (occurrence: None)
  Receive Date: 20091209
  Receipt Date: 20091207
  Transmission Date: 20100525
  Serious: Yes (Death, Hospitalization)
  Sender: FDA-Public Use
  Company Number: PHEH2009US10791

PATIENT
  Sex: Male

DRUGS (10)
  1. EXJADE [Suspect]
     Indication: IRON OVERLOAD
     Dosage: 1000 MG, DAILY
     Route: 048
     Dates: start: 20090806, end: 20090901
  2. EXJADE [Suspect]
     Indication: IRON METABOLISM DISORDER
  3. AMBIEN [Concomitant]
     Indication: INSOMNIA
     Dosage: 5 MG, QHS
     Route: 048
     Dates: start: 20090813
  4. ARANESP [Concomitant]
     Indication: ANAEMIA
     Dosage: 200 MG, UNK
     Route: 058
     Dates: start: 20090903, end: 20090906
  5. FUROSEMIDE [Concomitant]
     Indication: OEDEMA
     Dosage: 12 MG, QD (80MG AM, 40MG HS)
     Route: 048
     Dates: start: 20090810
  6. SYNTHROID [Concomitant]
     Indication: HYPOTHYROIDISM
     Dosage: 50 MCG, QD
     Route: 048
     Dates: start: 20090616
  7. VITAMIN B-12 [Concomitant]
     Indication: VITAMIN SUPPLEMENTATION
     Dosage: 1000 MCG, QD
     Route: 048
     Dates: start: 20080721
  8. CENTRUM SILVER [Concomitant]
     Dosage: UNK, QD
     Route: 048
  9. TIMOLOL MALEATE [Concomitant]
     Dosage: 1 DROP IN RIGHT EYE, QOD
     Dates: start: 20031211
  10. VITAMIN D [Concomitant]
     Dosage: 1000 U, QD
     Route: 048

REACTIONS (10)
  - BLOOD PRESSURE DECREASED [None]
  - CARDIAC ARREST [None]
  - CARDIAC FAILURE CONGESTIVE [None]
  - CARDIOGENIC SHOCK [None]
  - EJECTION FRACTION DECREASED [None]
  - HYPERKALAEMIA [None]
  - METABOLIC ACIDOSIS [None]
  - MYOCARDIAL INFARCTION [None]
  - PULMONARY OEDEMA [None]
  - RIGHT VENTRICULAR FAILURE [None]
